FAERS Safety Report 4438785-0 (Version None)
Quarter: 2004Q3

REPORT INFORMATION
  Report Type: 
  Country: None (occurrence: None)
  Receive Date: 20040901
  Receipt Date: 20040824
  Transmission Date: 20050211
  Serious: Yes (Hospitalization, Other)
  Sender: FDA-Public Use
  Company Number: ES-JNJFOC-20040705324

PATIENT
  Age: 48 Year
  Sex: Female

DRUGS (8)
  1. REMICADE [Suspect]
     Route: 042
  2. REMICADE [Suspect]
     Route: 042
  3. REMICADE [Suspect]
     Route: 042
  4. REMICADE [Suspect]
     Indication: PSORIATIC ARTHROPATHY
     Route: 042
  5. METHOTREXATE [Concomitant]
  6. CEMIDON [Concomitant]
  7. FOLIC ACID [Concomitant]
  8. NAPROXEN [Concomitant]

REACTIONS (5)
  - BLINDNESS UNILATERAL [None]
  - DEMYELINATION [None]
  - MULTIPLE SCLEROSIS [None]
  - THERAPY NON-RESPONDER [None]
  - VISUAL ACUITY REDUCED [None]
